FAERS Safety Report 15700081 (Version 3)
Quarter: 2018Q4

REPORT INFORMATION
  Report Type: Spontaneous
  Country: GB (occurrence: GB)
  Receive Date: 20181207
  Receipt Date: 20181213
  Transmission Date: 20190205
  Serious: Yes (Other)
  Sender: FDA-Public Use
  Company Number: GB-PFIZER INC-2018498894

PATIENT
  Age: 37 Year
  Sex: Male

DRUGS (7)
  1. PYRAZINAMIDE. [Concomitant]
     Active Substance: PYRAZINAMIDE
     Indication: TUBERCULOSIS
  2. AMIKACIN SULFATE. [Concomitant]
     Active Substance: AMIKACIN SULFATE
     Indication: TUBERCULOSIS
     Dosage: UNK
  3. ETHAMBUTOL [Concomitant]
     Active Substance: ETHAMBUTOL HYDROCHLORIDE
  4. DEXAMETHASONE SODIUM PHOSPHATE. [Suspect]
     Active Substance: DEXAMETHASONE SODIUM PHOSPHATE
     Dosage: 16 MG, BID
  5. LEVOFLOXACIN. [Concomitant]
     Active Substance: LEVOFLOXACIN
     Indication: TUBERCULOSIS
     Dosage: UNK
  6. RIFAMPICIN [Concomitant]
     Active Substance: RIFAMPIN
     Indication: TUBERCULOSIS
  7. ISONIAZID. [Concomitant]
     Active Substance: ISONIAZID
     Indication: TUBERCULOSIS

REACTIONS (1)
  - Vasculitis [Unknown]
